FAERS Safety Report 22232921 (Version 2)
Quarter: 2023Q2

REPORT INFORMATION
  Report Type: Other
  Country: IN (occurrence: None)
  Receive Date: 20230420
  Receipt Date: 20230425
  Transmission Date: 20230722
  Serious: Yes (Death)
  Sender: FDA-Public Use
  Company Number: IN-ROCHE-3324705

PATIENT
  Age: 69 Year
  Sex: Male

DRUGS (2)
  1. TECENTRIQ [Suspect]
     Active Substance: ATEZOLIZUMAB
     Indication: Hepatocellular carcinoma
     Dosage: ONGOING: YES,  INTERVAL 26 DAYS
     Route: 042
     Dates: start: 20221217
  2. AVASTIN [Suspect]
     Active Substance: BEVACIZUMAB
     Indication: Hepatocellular carcinoma
     Dosage: ONGOING: YES,   INTERVAL 26 DAYS
     Route: 042
     Dates: start: 20221217

REACTIONS (2)
  - Death [Fatal]
  - Asthenia [Unknown]

NARRATIVE: CASE EVENT DATE: 20230403
